FAERS Safety Report 25540635 (Version 1)
Quarter: 2025Q3

REPORT INFORMATION
  Report Type: Spontaneous
  Country: US (occurrence: None)
  Receive Date: 20250710
  Receipt Date: 20250710
  Transmission Date: 20251021
  Serious: Yes (Other)
  Sender: FDA-CTU
  Company Number: None

PATIENT
  Age: 35 Year
  Sex: Female
  Weight: 116.1 kg

DRUGS (1)
  1. ZEPBOUND [Suspect]
     Active Substance: TIRZEPATIDE
     Indication: Weight decreased
     Route: 050
     Dates: start: 20250602, end: 20250602

REACTIONS (5)
  - Haematochezia [None]
  - Vaginal haemorrhage [None]
  - Visual impairment [None]
  - Hypoglycaemia [None]
  - Headache [None]

NARRATIVE: CASE EVENT DATE: 20250602
